FAERS Safety Report 10026077 (Version 1)
Quarter: 2014Q1

REPORT INFORMATION
  Report Type: Spontaneous
  Country: IT (occurrence: IT)
  Receive Date: 20140320
  Receipt Date: 20140320
  Transmission Date: 20141002
  Serious: Yes (Other)
  Sender: FDA-Public Use
  Company Number: PHHY2014IT031763

PATIENT
  Age: 56 Year
  Sex: Male

DRUGS (6)
  1. IRINOTECAN [Suspect]
     Indication: COLON CANCER
     Dosage: 350 MG, UNK
     Route: 042
     Dates: start: 20080718, end: 20090121
  2. IRINOTECAN [Suspect]
  3. 5 FLUORO URACIL [Suspect]
     Indication: COLON CANCER
     Dosage: 110 NG, UNK
     Route: 042
     Dates: start: 20080718, end: 20090121
  4. 5 FLUORO URACIL [Suspect]
     Dosage: UNK
  5. AVASTIN [Suspect]
     Indication: COLON CANCER
     Dosage: 430 MG, UNK
     Route: 042
     Dates: start: 20080818, end: 20081005
  6. LEDERFOLINE [Concomitant]
     Dosage: 390 MG, UNK
     Route: 042

REACTIONS (1)
  - Proteinuria [Recovered/Resolved]
